FAERS Safety Report 6300548-9 (Version None)
Quarter: 2009Q3

REPORT INFORMATION
  Report Type: 
  Country: None (occurrence: None)
  Receive Date: 20090806
  Receipt Date: 20090410
  Transmission Date: 20100115
  Serious: No
  Sender: FDA-Public Use
  Company Number: US-ABBOTT-09P-163-0567765-00

PATIENT
  Sex: Female
  Weight: 54.48 kg

DRUGS (3)
  1. DEPAKOTE ER [Suspect]
     Indication: MIGRAINE
     Route: 048
     Dates: start: 20061101, end: 20061101
  2. DEPAKOTE ER [Suspect]
     Route: 048
     Dates: start: 20061101, end: 20090408
  3. DEPAKOTE ER [Suspect]
     Route: 048
     Dates: start: 20090409

REACTIONS (1)
  - DENTAL CARIES [None]
